FAERS Safety Report 8784974 (Version 2)
Quarter: 2013Q4

REPORT INFORMATION
  Report Type: Spontaneous
  Country: US (occurrence: US)
  Receive Date: 20120914
  Receipt Date: 20131101
  Transmission Date: 20140711
  Serious: No
  Sender: FDA-Public Use
  Company Number: US-009507513-1209USA006167

PATIENT
  Sex: Female

DRUGS (1)
  1. DR. SCHOLLS CORN REMOVERS [Suspect]
     Indication: SKIN PAPILLOMA
     Dosage: UNK, UNKNOWN
     Route: 048
     Dates: start: 20120602

REACTIONS (3)
  - Abdominal pain upper [Unknown]
  - Malaise [Unknown]
  - Headache [Unknown]
